FAERS Safety Report 9736085 (Version 2)
Quarter: 2016Q1

REPORT INFORMATION
  Report Type: Report from Study
  Country: US (occurrence: US)
  Receive Date: 20131206
  Receipt Date: 20160115
  Transmission Date: 20160526
  Serious: Yes (Hospitalization)
  Sender: FDA-Public Use
  Company Number: US-ROCHE-1307402

PATIENT
  Age: 46 Year
  Sex: Female
  Weight: 91.35 kg

DRUGS (35)
  1. NEXAVAR [Concomitant]
     Active Substance: SORAFENIB
     Route: 048
     Dates: start: 20110319
  2. NEXAVAR [Concomitant]
     Active Substance: SORAFENIB
     Dosage: INCREASED SOMET SUBSEQUENT TO STARTING 200 MG
     Route: 065
  3. LORAZEPAM. [Concomitant]
     Active Substance: LORAZEPAM
     Dosage: PRN
     Route: 048
     Dates: start: 20110727
  4. COUMADIN [Concomitant]
     Active Substance: WARFARIN SODIUM
     Route: 065
     Dates: start: 20090929, end: 20100303
  5. DEXAMETHASONE. [Concomitant]
     Active Substance: DEXAMETHASONE
     Route: 065
  6. ERBITUX [Concomitant]
     Active Substance: CETUXIMAB
     Route: 065
     Dates: start: 20100609
  7. CARTIA XT [Concomitant]
     Active Substance: DILTIAZEM HYDROCHLORIDE
     Route: 048
     Dates: start: 20111108
  8. IRINOTECAN [Concomitant]
     Active Substance: IRINOTECAN
     Route: 065
  9. FLUOROURACIL. [Concomitant]
     Active Substance: FLUOROURACIL
     Dosage: GIVEN CONCURRENTLY WITH 1980MG DOSE
     Route: 065
  10. AVASTIN [Suspect]
     Active Substance: BEVACIZUMAB
     Indication: COLON CANCER
     Route: 065
     Dates: start: 20111026, end: 20111219
  11. AVASTIN [Suspect]
     Active Substance: BEVACIZUMAB
     Indication: METASTASES TO LARGE INTESTINE
     Dosage: LAST DOSE OF CHEMOTHERAPY WAS ON 03/MAR/2010
     Route: 065
     Dates: start: 20090902
  12. VECTIBIX [Concomitant]
     Active Substance: PANITUMUMAB
     Route: 065
     Dates: start: 20110127, end: 20110315
  13. CHOLECALCIFEROL [Concomitant]
     Active Substance: CHOLECALCIFEROL
     Dosage: 5000 UNIT
     Route: 048
     Dates: start: 20110413
  14. LOSARTAN/HCTZ [Concomitant]
     Active Substance: HYDROCHLOROTHIAZIDE\LOSARTAN
     Dosage: PRN (50-12.5 MG)
     Route: 048
     Dates: start: 20110727
  15. ATROPINE. [Concomitant]
     Active Substance: ATROPINE
     Route: 065
  16. HYDROCORTISONE. [Concomitant]
     Active Substance: HYDROCORTISONE
     Dosage: 1 - 4 X DAY WHILE AWAKE
     Route: 048
     Dates: start: 20110815
  17. ACETAMINOPHEN. [Concomitant]
     Active Substance: ACETAMINOPHEN
     Route: 065
  18. AVASTIN [Suspect]
     Active Substance: BEVACIZUMAB
     Dosage: RECEIVED LAST DOSE OF BEVACIZUMAB ON 25/MAY/2012
     Route: 065
     Dates: start: 20111221
  19. ALBUTEROL SULFATE. [Concomitant]
     Active Substance: ALBUTEROL SULFATE
     Dosage: 90 MCG AEROSOL INHAILER
     Route: 065
  20. SINGULAIR [Concomitant]
     Active Substance: MONTELUKAST SODIUM
     Route: 048
     Dates: start: 20110315
  21. PANITUMUMAB [Concomitant]
     Active Substance: PANITUMUMAB
     Route: 065
     Dates: start: 20110127, end: 20110315
  22. ALBUTEROL SULFATE. [Concomitant]
     Active Substance: ALBUTEROL SULFATE
     Dosage: 2 PUFFS 44 HOURS, PRN (90 MCG AEROSOL INHAILER), INHALATION AEROSOL
     Route: 065
     Dates: start: 20100722
  23. OXYCODONE [Concomitant]
     Active Substance: OXYCODONE
     Indication: PAIN
     Dosage: 5-10MG  PRN (1-2 EVERY 4 HRS)
     Route: 048
     Dates: start: 20111209
  24. FLUOROURACIL. [Concomitant]
     Active Substance: FLUOROURACIL
     Dosage: GIVEN CONCURRENTLY WITH 200MG DOSE
     Route: 065
  25. CETUXIMAB [Concomitant]
     Active Substance: CETUXIMAB
     Route: 065
     Dates: start: 20100630, end: 20110119
  26. LOMOTIL (UNITED STATES) [Concomitant]
     Dosage: 1-2  PRN, 2.2-0.025 MG
     Route: 048
     Dates: start: 20100901
  27. LOSARTAN/HCTZ [Concomitant]
     Active Substance: HYDROCHLOROTHIAZIDE\LOSARTAN
     Dosage: 50-12.5 MG, AS NEEDED
     Route: 048
  28. LUNESTA [Concomitant]
     Active Substance: ESZOPICLONE
     Dosage: QHS (BEFORE BED TIME) PRN
     Route: 048
     Dates: start: 20110511
  29. OMEPRAZOLE. [Concomitant]
     Active Substance: OMEPRAZOLE
     Dosage: DELAYED RELEASE
     Route: 048
     Dates: start: 20100924
  30. ACETAMINOPHEN/OXYCODONE [Concomitant]
     Active Substance: ACETAMINOPHEN\OXYCODONE HYDROCHLORIDE
     Indication: PAIN
     Dosage: PRN, 10/325 MG
     Route: 048
     Dates: start: 20111209
  31. ERBITUX [Concomitant]
     Active Substance: CETUXIMAB
     Dosage: WEEKLY
     Route: 065
     Dates: start: 20100630, end: 20110119
  32. PALONOSETRON [Concomitant]
     Active Substance: PALONOSETRON
     Route: 065
  33. LEUCOVORIN. [Concomitant]
     Active Substance: LEUCOVORIN
     Route: 065
  34. FERAHEME [Concomitant]
     Active Substance: FERUMOXYTOL NON-STOICHIOMETRIC MAGNETITE
     Route: 065
     Dates: start: 20110914, end: 20110928
  35. DIPHENHYDRAMINE. [Concomitant]
     Active Substance: DIPHENHYDRAMINE
     Route: 065

REACTIONS (27)
  - Disease progression [Unknown]
  - Constipation [Unknown]
  - Oral disorder [Unknown]
  - Muscle spasms [Unknown]
  - Hypertension [Unknown]
  - Wound [Unknown]
  - Choledochoenterostomy [Unknown]
  - Tension headache [Unknown]
  - Abdominal pain [Unknown]
  - Anxiety [Unknown]
  - Dehydration [Unknown]
  - Jaundice [Unknown]
  - Depression [Unknown]
  - Diarrhoea [Recovered/Resolved]
  - Metastases to lung [Unknown]
  - Fatigue [Unknown]
  - Rash [Recovered/Resolved]
  - Dermatitis [Unknown]
  - Herpes zoster [Recovered/Resolved]
  - Disease recurrence [Unknown]
  - Ocular icterus [Unknown]
  - Back pain [Unknown]
  - Urticaria [Recovered/Resolved]
  - Chest pain [Recovered/Resolved]
  - Nausea [Recovered/Resolved]
  - Vomiting [Unknown]
  - Venous thrombosis [Unknown]

NARRATIVE: CASE EVENT DATE: 20090929
